FAERS Safety Report 20098644 (Version 1)
Quarter: 2021Q4

REPORT INFORMATION
  Report Type: Report from Study
  Country: TW (occurrence: TW)
  Receive Date: 20211122
  Receipt Date: 20211122
  Transmission Date: 20220303
  Serious: Yes (Life-Threatening, Hospitalization)
  Sender: FDA-Public Use
  Company Number: TW-CELGENE-TWN-20211001565

PATIENT
  Age: 60 Year
  Sex: Male
  Weight: 79 kg

DRUGS (8)
  1. POMALIDOMIDE [Suspect]
     Active Substance: POMALIDOMIDE
     Indication: Plasma cell myeloma
     Dosage: 4 MILLIGRAM
     Route: 048
     Dates: start: 20210628, end: 20211008
  2. DORZOLAMIDE HYDROCHLORIDE [Concomitant]
     Active Substance: DORZOLAMIDE HYDROCHLORIDE
     Indication: Glaucoma
     Dosage: 1 DROPS
     Route: 061
     Dates: start: 20200901
  3. TIMOLOL MALEATE [Concomitant]
     Active Substance: TIMOLOL MALEATE
     Indication: Glaucoma
     Dosage: 1 DROPS
     Route: 061
     Dates: start: 20200901
  4. LATANOPROST [Concomitant]
     Active Substance: LATANOPROST
     Indication: Glaucoma
     Dosage: 1 DROPS
     Route: 061
     Dates: start: 20210901
  5. solaxin [Concomitant]
     Indication: Pain in extremity
     Route: 048
     Dates: start: 20210726, end: 20211004
  6. FUSIDATE SODIUM [Concomitant]
     Active Substance: FUSIDATE SODIUM
     Indication: Cellulitis
     Dosage: 250 MILLIGRAM
     Route: 048
     Dates: start: 20120901, end: 20210929
  7. CATAFLAM [Concomitant]
     Active Substance: DICLOFENAC POTASSIUM
     Indication: Cellulitis
     Dosage: 25 MILLIGRAM
     Route: 048
     Dates: start: 20210901, end: 20210929
  8. LACTATED RINGERS SOLUTION [Concomitant]
     Active Substance: CALCIUM CHLORIDE\POTASSIUM CHLORIDE\SODIUM CHLORIDE\SODIUM LACTATE
     Indication: Product used for unknown indication
     Route: 065

REACTIONS (3)
  - Septic shock [Recovered/Resolved]
  - Pneumocystis jirovecii pneumonia [Recovering/Resolving]
  - Pneumonia cytomegaloviral [Recovering/Resolving]

NARRATIVE: CASE EVENT DATE: 20211004
